FAERS Safety Report 8601964-2 (Version None)
Quarter: 2012Q3

REPORT INFORMATION
  Report Type: 
  Country: None (occurrence: None)
  Receive Date: 20120817
  Receipt Date: 20120613
  Transmission Date: 20120928
  Serious: No
  Sender: FDA-Public Use
  Company Number: US-BRISTOL-MYERS SQUIBB COMPANY-16682973

PATIENT
  Age: 84 Year
  Sex: Male
  Weight: 85 kg

DRUGS (2)
  1. CYMBALTA [Concomitant]
  2. SPRYCEL [Suspect]
     Indication: CHRONIC LEUKAEMIA
     Dosage: STARTED 2 WEEKS AGO.

REACTIONS (1)
  - DIARRHOEA [None]
